FAERS Safety Report 20704893 (Version 1)
Quarter: 2022Q2

REPORT INFORMATION
  Report Type: Spontaneous
  Country: GR (occurrence: GR)
  Receive Date: 20220413
  Receipt Date: 20220413
  Transmission Date: 20220721
  Serious: Yes (Other)
  Sender: FDA-Public Use
  Company Number: GR-SA-SAC20220411000712

PATIENT
  Age: 51 Year
  Sex: Female

DRUGS (1)
  1. AUBAGIO [Suspect]
     Active Substance: TERIFLUNOMIDE
     Indication: Relapsing-remitting multiple sclerosis
     Dosage: UNK
     Dates: start: 2018

REACTIONS (1)
  - B-cell lymphoma [Unknown]
